FAERS Safety Report 4565673-1 (Version None)
Quarter: 2005Q1

REPORT INFORMATION
  Report Type: 
  Country: None (occurrence: None)
  Receive Date: 20050126
  Receipt Date: 20050105
  Transmission Date: 20050727
  Serious: Yes (Hospitalization)
  Sender: FDA-Public Use
  Company Number: 05-017

PATIENT
  Age: 51 Year
  Sex: Male

DRUGS (15)
  1. VERAPAMIL HCL [Suspect]
  2. METOLAZONE [Concomitant]
  3. LASIX [Concomitant]
  4. METOPROLOL [Concomitant]
  5. CRESTOR [Concomitant]
  6. PAROXETINE HCL [Concomitant]
  7. ASPIRIN [Concomitant]
  8. GEMFIBROZIL [Concomitant]
  9. NPH INSULIN [Concomitant]
  10. ALLOPURINOL [Concomitant]
  11. MICARDIS [Concomitant]
  12. COZAAR [Concomitant]
  13. NIASPAN [Concomitant]
  14. ROSUVASTATIN [Concomitant]
  15. NIACIN [Concomitant]

REACTIONS (8)
  - ASTHENIA [None]
  - BLOOD CREATINE PHOSPHOKINASE INCREASED [None]
  - DEHYDRATION [None]
  - FATIGUE [None]
  - MYALGIA [None]
  - OEDEMA PERIPHERAL [None]
  - ORTHOPNOEA [None]
  - RENAL FAILURE [None]
